FAERS Safety Report 9412120 (Version 1)
Quarter: 2013Q3

REPORT INFORMATION
  Report Type: Spontaneous
  Country: US (occurrence: None)
  Receive Date: 20130719
  Receipt Date: 20130719
  Transmission Date: 20140515
  Serious: No
  Sender: FDA-Public Use
  Company Number: None

PATIENT
  Age: 58 Year
  Sex: Female
  Weight: 82.1 kg

DRUGS (2)
  1. ZOSYN [Suspect]
     Route: 042
  2. VANCOMYCIN [Suspect]
     Route: 042

REACTIONS (1)
  - Blood creatinine increased [None]
